FAERS Safety Report 5049039-6 (Version None)
Quarter: 2006Q3

REPORT INFORMATION
  Report Type: 
  Country: None (occurrence: None)
  Receive Date: 20060712
  Receipt Date: 20060130
  Transmission Date: 20061208
  Serious: No
  Sender: FDA-Public Use
  Company Number: US-GLAXOSMITHKLINE-A0591528A

PATIENT
  Age: 43 Year
  Sex: Female

DRUGS (7)
  1. IMITREX [Suspect]
     Indication: MIGRAINE
     Dosage: 50MG AS REQUIRED
     Route: 048
  2. WELLBUTRIN [Concomitant]
  3. DOXEPIN [Concomitant]
  4. PERCOCET [Concomitant]
  5. DONNATAL [Concomitant]
  6. TAGAMET [Concomitant]
  7. ROBAXIN [Concomitant]

REACTIONS (3)
  - DRUG INEFFECTIVE [None]
  - PHARMACEUTICAL PRODUCT COMPLAINT [None]
  - VOMITING [None]
